FAERS Safety Report 6867848-5 (Version None)
Quarter: 2010Q3

REPORT INFORMATION
  Report Type: 
  Country: None (occurrence: None)
  Receive Date: 20100722
  Receipt Date: 20080507
  Transmission Date: 20110219
  Serious: No
  Sender: FDA-Public Use
  Company Number: US-PFIZER INC-2008040050

PATIENT
  Sex: Female
  Weight: 70.454 kg

DRUGS (4)
  1. CHANTIX [Suspect]
     Indication: SMOKING CESSATION THERAPY
     Dates: start: 20080401
  2. PHENTERMINE HYDROCHLORIDE [Suspect]
     Indication: WEIGHT DECREASED
     Dates: start: 20080101
  3. DIETHYLPROPION HYDROCHLORIDE TAB [Suspect]
     Indication: WEIGHT DECREASED
     Dates: start: 20070101
  4. DIOVANE [Concomitant]
     Indication: HYPERTENSION

REACTIONS (5)
  - ANXIETY [None]
  - DRUG INEFFECTIVE [None]
  - INAPPROPRIATE SCHEDULE OF DRUG ADMINISTRATION [None]
  - INSOMNIA [None]
  - PRURITUS [None]
